FAERS Safety Report 5624757-7 (Version None)
Quarter: 2008Q1

REPORT INFORMATION
  Report Type: 
  Country: None (occurrence: None)
  Receive Date: 20080213
  Receipt Date: 20080207
  Transmission Date: 20080703
  Serious: Yes (Other)
  Sender: FDA-Public Use
  Company Number: TN-MERCK-0802USA01465

PATIENT
  Age: 30 Year
  Sex: Female

DRUGS (5)
  1. COSOPT [Suspect]
     Indication: POST PROCEDURAL COMPLICATION
     Route: 047
  2. SOLUPRED [Concomitant]
     Route: 048
  3. MAXIDROL [Concomitant]
     Route: 047
  4. TROPICAMIDE [Concomitant]
     Route: 047
  5. OFLOXACIN [Concomitant]
     Route: 047

REACTIONS (4)
  - CONVULSION [None]
  - FACIAL NERVE DISORDER [None]
  - NEURALGIA [None]
  - PARAESTHESIA [None]
